FAERS Safety Report 21159152 (Version 8)
Quarter: 2023Q4

REPORT INFORMATION
  Report Type: Spontaneous
  Country: US (occurrence: US)
  Receive Date: 20220802
  Receipt Date: 20231115
  Transmission Date: 20240110
  Serious: Yes (Other)
  Sender: FDA-Public Use
  Company Number: US-BRISTOL-MYERS SQUIBB COMPANY-2022-078916

PATIENT
  Age: 76 Year
  Sex: Female

DRUGS (2)
  1. REVLIMID [Suspect]
     Active Substance: LENALIDOMIDE
     Indication: Plasma cell myeloma
     Route: 048
     Dates: start: 202105
  2. REVLIMID [Suspect]
     Active Substance: LENALIDOMIDE
     Dosage: FREQUENCY: 21.?21 DAYS ON, 7 DAYS OFF
     Route: 048

REACTIONS (6)
  - Neuropathy peripheral [Unknown]
  - Rash pruritic [Recovered/Resolved]
  - Pruritus [Unknown]
  - Palpitations [Unknown]
  - Decreased appetite [Unknown]
  - Formication [Unknown]

NARRATIVE: CASE EVENT DATE: 20220711
